FAERS Safety Report 19217690 (Version 1)
Quarter: 2021Q2

REPORT INFORMATION
  Report Type: Other
  Country: CA (occurrence: CA)
  Receive Date: 20210505
  Receipt Date: 20210505
  Transmission Date: 20210717
  Serious: Yes (Other)
  Sender: FDA-Public Use
  Company Number: CA-APOTEX-2021AP010694

PATIENT
  Sex: Female

DRUGS (3)
  1. LEVEMIR [Suspect]
     Active Substance: INSULIN DETEMIR
     Indication: TYPE 2 DIABETES MELLITUS
     Dosage: UNK
     Route: 065
  2. INSULIN GLARGINE [Suspect]
     Active Substance: INSULIN GLARGINE
     Indication: TYPE 2 DIABETES MELLITUS
     Dosage: UNK UNK, QD; 18 UNITS
     Route: 065
  3. GABAPENTIN. [Suspect]
     Active Substance: GABAPENTIN
     Indication: NEURALGIA
     Dosage: UNK
     Route: 065

REACTIONS (12)
  - Anxiety [Unknown]
  - Neuralgia [Unknown]
  - Diabetic foot [Unknown]
  - Vision blurred [Unknown]
  - Sciatica [Unknown]
  - Muscle spasms [Unknown]
  - Pharyngeal swelling [Unknown]
  - Dysphagia [Unknown]
  - Swelling [Unknown]
  - Onychoclasis [Unknown]
  - Pruritus [Unknown]
  - Blood glucose increased [Unknown]
